FAERS Safety Report 26215276 (Version 1)
Quarter: 2025Q4

REPORT INFORMATION
  Report Type: Spontaneous
  Country: EU (occurrence: EU)
  Receive Date: 20251230
  Receipt Date: 20251230
  Transmission Date: 20260117
  Serious: Yes (Hospitalization, Other)
  Sender: PHARMOBEDIENT CONSULTING, LLC
  Company Number: EU-Pharmobedient-000744

PATIENT
  Age: 51 Year
  Sex: Female

DRUGS (6)
  1. PREGABALIN [Interacting]
     Active Substance: PREGABALIN
     Indication: Vulvovaginal discomfort
  2. TRAZODONE HYDROCHLORIDE [Interacting]
     Active Substance: TRAZODONE HYDROCHLORIDE
     Indication: Sleep disorder
  3. MEDROXYPROGESTERONE ACETATE [Interacting]
     Active Substance: MEDROXYPROGESTERONE ACETATE
     Indication: Haemorrhage
     Dosage: 1 INJECTION
  4. ESTRIOL [Interacting]
     Active Substance: ESTRIOL
     Indication: Vulvovaginal discomfort
     Dosage: 1 MG/G
  5. TRAZODONE HYDROCHLORIDE [Interacting]
     Active Substance: TRAZODONE HYDROCHLORIDE
     Indication: Sleep disorder
  6. PREGABALIN [Interacting]
     Active Substance: PREGABALIN
     Indication: Vulvovaginal discomfort

REACTIONS (2)
  - Drug interaction [Unknown]
  - Persistent genital arousal disorder [Recovered/Resolved]
